FAERS Safety Report 5627644-3 (Version None)
Quarter: 2008Q1

REPORT INFORMATION
  Report Type: 
  Country: None (occurrence: None)
  Receive Date: 20080214
  Receipt Date: 20080214
  Transmission Date: 20080703
  Serious: Yes (Hospitalization, Disabling)
  Sender: FDA-Public Use
  Company Number: None

PATIENT
  Age: 19 Year
  Sex: Female
  Weight: 50 kg

DRUGS (1)
  1. MAGNESIUM 40 MG/ML [Suspect]
     Indication: PREGNANCY INDUCED HYPERTENSION
     Dosage: IV DRIP
     Route: 041
     Dates: start: 20071002, end: 20071002

REACTIONS (4)
  - HYPERMAGNESAEMIA [None]
  - MUSCULAR WEAKNESS [None]
  - PARALYSIS FLACCID [None]
  - RESPIRATORY FAILURE [None]
